FAERS Safety Report 8841260 (Version 1)
Quarter: 2012Q4

REPORT INFORMATION
  Report Type: 
  Country: US (occurrence: US)
  Receive Date: 20121015
  Receipt Date: 20121015
  Transmission Date: 20130627
  Serious: No
  Sender: FDA-Public Use
  Company Number: US-009507513-1210USA005003

PATIENT
  Sex: Female
  Weight: 73.92 kg

DRUGS (2)
  1. NUVARING [Suspect]
     Indication: CONTRACEPTION
     Dosage: 3 weeks in, 1 week ring free break
     Route: 067
     Dates: start: 201208, end: 20121003
  2. NUVARING [Suspect]
     Dosage: UNK
     Route: 067
     Dates: start: 20121007, end: 201210

REACTIONS (3)
  - Metrorrhagia [Unknown]
  - Headache [Not Recovered/Not Resolved]
  - Migraine [Not Recovered/Not Resolved]
